FAERS Safety Report 11747384 (Version 1)
Quarter: 2015Q4

REPORT INFORMATION
  Report Type: Spontaneous
  Country: US (occurrence: US)
  Receive Date: 20151117
  Receipt Date: 20151117
  Transmission Date: 20160304
  Serious: Yes (Other)
  Sender: FDA-Public Use
  Company Number: US-CELGENEUS-USA-2015112943

PATIENT
  Sex: Female

DRUGS (1)
  1. REVLIMID [Suspect]
     Active Substance: LENALIDOMIDE
     Indication: PLASMA CELL MYELOMA
     Dosage: 10 MILLIGRAM
     Route: 048
     Dates: start: 20151015

REACTIONS (6)
  - Chest pain [Unknown]
  - Pyrexia [Unknown]
  - Furuncle [Unknown]
  - Dyspnoea [Unknown]
  - Fatigue [Unknown]
  - Ear pain [Unknown]

NARRATIVE: CASE EVENT DATE: 2015
